FAERS Safety Report 25114401 (Version 1)
Quarter: 2025Q1

REPORT INFORMATION
  Report Type: Spontaneous
  Country: US (occurrence: US)
  Receive Date: 20250324
  Receipt Date: 20250324
  Transmission Date: 20250409
  Serious: No
  Sender: SANOFI AVENTIS
  Company Number: US-SA-2025SA084483

PATIENT
  Age: 55 Year
  Sex: Female

DRUGS (37)
  1. DUPIXENT [Suspect]
     Active Substance: DUPILUMAB
     Indication: Asthma
     Dosage: 300 MG, QOW
     Route: 058
     Dates: start: 20241001
  2. AMITRIPTYLINE [Concomitant]
     Active Substance: AMITRIPTYLINE
  3. ATORVASTATIN [Concomitant]
     Active Substance: ATORVASTATIN
  4. AZITHROMYCIN [Concomitant]
     Active Substance: AZITHROMYCIN
  5. BENZONATATE [Concomitant]
     Active Substance: BENZONATATE
  6. CROMOLYN SODIUM [Concomitant]
     Active Substance: CROMOLYN SODIUM
  7. DULOXETINE [Concomitant]
     Active Substance: DULOXETINE
  8. DULOXETINE [Concomitant]
     Active Substance: DULOXETINE
  9. ESTRADIOL [Concomitant]
     Active Substance: ESTRADIOL
  10. FAMOTIDINE [Concomitant]
     Active Substance: FAMOTIDINE
  11. FASENRA [Concomitant]
     Active Substance: BENRALIZUMAB
  12. FLUCONAZOLE [Concomitant]
     Active Substance: FLUCONAZOLE
  13. FLUCONAZOLE [Concomitant]
     Active Substance: FLUCONAZOLE
  14. GABAPENTIN [Concomitant]
     Active Substance: GABAPENTIN
  15. GABAPENTIN [Concomitant]
     Active Substance: GABAPENTIN
  16. HYDRALAZINE [Concomitant]
     Active Substance: HYDRALAZINE HYDROCHLORIDE
  17. IBUPROFEN [Concomitant]
     Active Substance: IBUPROFEN
  18. IPRATROPIUM [Concomitant]
     Active Substance: IPRATROPIUM
  19. LACTULOSE [Concomitant]
     Active Substance: LACTULOSE
  20. LORAZEPAM [Concomitant]
     Active Substance: LORAZEPAM
  21. METFORMIN [Concomitant]
     Active Substance: METFORMIN HYDROCHLORIDE
  22. METHOCARBAMOL [Concomitant]
     Active Substance: METHOCARBAMOL
  23. MOMETASONE [Concomitant]
     Active Substance: MOMETASONE
  24. NAPROXEN [Concomitant]
     Active Substance: NAPROXEN
  25. NASACORT [Concomitant]
     Active Substance: TRIAMCINOLONE ACETONIDE
  26. OMEPRAZOLE [Concomitant]
     Active Substance: OMEPRAZOLE
  27. OXYBUTYNIN [Concomitant]
     Active Substance: OXYBUTYNIN
  28. PANTOPRAZOLE [Concomitant]
     Active Substance: PANTOPRAZOLE
  29. PREDNISONE [Concomitant]
     Active Substance: PREDNISONE
  30. PREDNISONE [Concomitant]
     Active Substance: PREDNISONE
  31. SAXENDA [Concomitant]
     Active Substance: LIRAGLUTIDE
  32. SINGULAIR [Concomitant]
     Active Substance: MONTELUKAST SODIUM
  33. SUCRALFATE [Concomitant]
     Active Substance: SUCRALFATE
  34. TRAZODONE [Concomitant]
     Active Substance: TRAZODONE HYDROCHLORIDE
  35. TRELEGY ELLIPTA [Concomitant]
     Active Substance: FLUTICASONE FUROATE\UMECLIDINIUM BROMIDE\VILANTEROL TRIFENATATE
  36. VENTOLIN HFA [Concomitant]
     Active Substance: ALBUTEROL SULFATE
  37. ZOLOFT [Concomitant]
     Active Substance: SERTRALINE HYDROCHLORIDE

REACTIONS (4)
  - Impaired quality of life [Unknown]
  - Asthma [Unknown]
  - Dyspnoea [Unknown]
  - Respiratory tract infection [Unknown]
